FAERS Safety Report 18662447 (Version 1)
Quarter: 2020Q4

REPORT INFORMATION
  Report Type: Spontaneous
  Country: FR (occurrence: FR)
  Receive Date: 20201224
  Receipt Date: 20201224
  Transmission Date: 20210114
  Serious: Yes (Hospitalization)
  Sender: FDA-Public Use
  Company Number: FR-TEVA-2020-FR-1860131

PATIENT
  Age: 39 Year
  Sex: Male
  Weight: 104 kg

DRUGS (12)
  1. IBUPROFENE [Suspect]
     Active Substance: IBUPROFEN
     Indication: TOOTH EXTRACTION
     Route: 048
     Dates: start: 202011, end: 202011
  2. BIRODOGYL [Suspect]
     Active Substance: METRONIDAZOLE\SPIRAMYCIN
     Indication: TOOTH EXTRACTION
     Route: 048
     Dates: start: 202011, end: 202011
  3. COVERAM [Concomitant]
     Active Substance: AMLODIPINE\PERINDOPRIL
  4. LOPINAVIR [Concomitant]
     Active Substance: LOPINAVIR
  5. ISETIONATE DE PENTAMIDINE [Concomitant]
  6. CHLORHYDRATE DE CLINDAMYCINE [Concomitant]
  7. CARDENSIEL 5 MG, COMPRIME PELLICULE SECABLE [Concomitant]
     Active Substance: BISOPROLOL FUMARATE
  8. ACIDE FOLINIQUE [Concomitant]
     Active Substance: LEUCOVORIN
  9. PYRIMETHAMINE [Concomitant]
     Active Substance: PYRIMETHAMINE
  10. RITONAVIR. [Concomitant]
     Active Substance: RITONAVIR
  11. DOLUTEGRAVIR [Concomitant]
     Active Substance: DOLUTEGRAVIR
  12. LEVEMIR [Concomitant]
     Active Substance: INSULIN DETEMIR

REACTIONS (2)
  - Acute kidney injury [Recovered/Resolved]
  - Hepatocellular injury [Recovered/Resolved]

NARRATIVE: CASE EVENT DATE: 20201118
